FAERS Safety Report 6549799-9 (Version None)
Quarter: 2010Q1

REPORT INFORMATION
  Report Type: 
  Country: None (occurrence: None)
  Receive Date: 20100119
  Receipt Date: 20100105
  Transmission Date: 20100710
  Serious: Yes (Hospitalization)
  Sender: FDA-Public Use
  Company Number: 1000011277

PATIENT
  Age: 83 Year
  Sex: Female
  Weight: 71.5 kg

DRUGS (11)
  1. CITALOPRAM HYDROBROMIDE [Suspect]
     Indication: DEPRESSION
     Dosage: 20 MG (20 MG, 1 IN 1 D), ORAL
     Route: 048
     Dates: start: 20091013, end: 20091117
  2. ESCITALOPRAM [Suspect]
     Dosage: ORAL
     Route: 048
     Dates: start: 20090805, end: 20090914
  3. LASIX [Suspect]
     Indication: HYPERTENSIVE HEART DISEASE
     Dosage: 40 MG (40 MG, 1 IN 1 D), ORAL
     Route: 048
     Dates: end: 20091116
  4. CORDAONE [Concomitant]
  5. TAREG [Concomitant]
  6. METFORMIN HCL [Concomitant]
  7. PREVISCAN (FLUINDIONE) [Concomitant]
  8. SERESTA [Concomitant]
  9. EQUANIL [Concomitant]
  10. PARACETAMOL [Concomitant]
  11. FORLAX [Concomitant]

REACTIONS (3)
  - HYPONATRAEMIA [None]
  - MALAISE [None]
  - RENAL FAILURE [None]
